FAERS Safety Report 8789744 (Version 1)
Quarter: 2012Q4

REPORT INFORMATION
  Report Type: Spontaneous
  Country: US (occurrence: None)
  Receive Date: 20120905
  Receipt Date: 20120905
  Transmission Date: 20130627
  Serious: No
  Sender: FDA-Public Use
  Company Number: 2012GMK003282

PATIENT
  Sex: Female

DRUGS (1)
  1. NORGESTIMATE + EE [Suspect]
     Indication: BIRTH CONTROL
     Route: 048

REACTIONS (3)
  - Pregnancy on oral contraceptive [None]
  - Drug ineffective [None]
  - Product packaging issue [None]
